FAERS Safety Report 6741476-4 (Version None)
Quarter: 2010Q2

REPORT INFORMATION
  Report Type: 
  Country: None (occurrence: None)
  Receive Date: 20100524
  Receipt Date: 20100507
  Transmission Date: 20101027
  Serious: Yes (Hospitalization, Other)
  Sender: FDA-Public Use
  Company Number: BCN-AS-2010-RR-122

PATIENT
  Age: 61 Year
  Sex: Male

DRUGS (7)
  1. CIPROFLOXACIN [Suspect]
     Indication: DEPRESSION
  2. VENLAFAXINE HCL [Suspect]
     Indication: BACK PAIN
     Dosage: 75MG BID TO 100MG BID
  3. METHADONE HCL [Suspect]
  4. HYDROMORPHONE HCL [Concomitant]
  5. METOCLOPRAMIDE [METOCLOPRAMIDE] [Concomitant]
  6. OYCODONE [OYCODONE] [Concomitant]
  7. CYPROHEPATADINE [CYPROHEPATADINE] [Concomitant]

REACTIONS (3)
  - DRUG INTERACTION [None]
  - OPIATES POSITIVE [None]
  - SEROTONIN SYNDROME [None]
